FAERS Safety Report 5778746-2 (Version None)
Quarter: 2008Q2

REPORT INFORMATION
  Report Type: 
  Country: None (occurrence: None)
  Receive Date: 20080619
  Receipt Date: 20080609
  Transmission Date: 20081010
  Serious: Yes (Hospitalization)
  Sender: FDA-Public Use
  Company Number: JP-ABBOTT-08P-087-0448720-00

PATIENT
  Age: 79 Year
  Sex: Male

DRUGS (8)
  1. LEUPLIN SR FOR INJECTION KIT [Suspect]
     Indication: PROSTATE CANCER STAGE II
     Route: 058
     Dates: start: 20060421
  2. LEUPLIN SR FOR INJECTION KIT [Suspect]
     Dates: end: 20060324
  3. PRANLUKAST [Concomitant]
     Indication: ASTHMA
     Route: 048
  4. TULOBUTEROL HYDROCHLORIDE [Concomitant]
     Indication: ASTHMA
     Route: 062
  5. AMLODIPINE BESYLATE [Concomitant]
     Indication: HYPERTENSION
     Route: 048
  6. OLMESARTAN MEDOXOMIL [Concomitant]
     Indication: HYPERTENSION
     Route: 048
  7. DOXAZOSIN MESYLATE [Concomitant]
     Indication: HYPERTENSION
     Route: 048
  8. TRICHLORMETHIAZIDE [Concomitant]
     Indication: HYPERTENSION
     Route: 048

REACTIONS (1)
  - ANKLE FRACTURE [None]
